FAERS Safety Report 12903553 (Version 1)
Quarter: 2016Q4

REPORT INFORMATION
  Report Type: Spontaneous
  Country: US (occurrence: US)
  Receive Date: 20161102
  Receipt Date: 20161102
  Transmission Date: 20170207
  Serious: No
  Sender: FDA-Public Use
  Company Number: US-009507513-1610USA013137

PATIENT
  Sex: Female

DRUGS (1)
  1. NEXPLANON [Suspect]
     Active Substance: ETONOGESTREL
     Dosage: EVERY 3 YEARS
     Route: 059
     Dates: start: 20160415

REACTIONS (2)
  - Vaginal haemorrhage [Unknown]
  - Amenorrhoea [Unknown]

NARRATIVE: CASE EVENT DATE: 201604
